FAERS Safety Report 24210260 (Version 2)
Quarter: 2024Q3

REPORT INFORMATION
  Report Type: Spontaneous
  Country: JP (occurrence: JP)
  Receive Date: 20240814
  Receipt Date: 20240820
  Transmission Date: 20241017
  Serious: Yes (Death, Life-Threatening, Hospitalization)
  Sender: PFIZER
  Company Number: JP-MLMSERVICE-20240806-PI151441-00128-1

PATIENT
  Age: 78 Year
  Sex: Male

DRUGS (12)
  1. DOXORUBICIN HYDROCHLORIDE [Suspect]
     Active Substance: DOXORUBICIN HYDROCHLORIDE
     Indication: Cardiac neoplasm malignant
     Dosage: 50 MG/M2, 1X/DAY (ON DAY 1)
  2. DOXORUBICIN HYDROCHLORIDE [Suspect]
     Active Substance: DOXORUBICIN HYDROCHLORIDE
     Indication: Mantle cell lymphoma stage IV
  3. RITUXIMAB [Suspect]
     Active Substance: RITUXIMAB
     Indication: Mantle cell lymphoma
     Dosage: 375 MG/M2, 1X/DAY (ON DAY 6)
  4. RITUXIMAB [Suspect]
     Active Substance: RITUXIMAB
     Indication: Cardiac neoplasm malignant
     Dosage: 375 MG/M2, 1X/DAY (ON DAY 1)
  5. BENDAMUSTINE HYDROCHLORIDE [Suspect]
     Active Substance: BENDAMUSTINE HYDROCHLORIDE
     Indication: Mantle cell lymphoma
     Dosage: 60 MG/M2 (ON DAYS 1 AND 2)
  6. BENDAMUSTINE HYDROCHLORIDE [Suspect]
     Active Substance: BENDAMUSTINE HYDROCHLORIDE
     Indication: Cardiac neoplasm malignant
  7. CYCLOPHOSPHAMIDE [Suspect]
     Active Substance: CYCLOPHOSPHAMIDE
     Indication: Cardiac neoplasm malignant
     Dosage: 750 MG/M2, 1X/DAY (ON DAY 1)
  8. CYCLOPHOSPHAMIDE [Suspect]
     Active Substance: CYCLOPHOSPHAMIDE
     Indication: Mantle cell lymphoma
  9. VINCRISTINE [Suspect]
     Active Substance: VINCRISTINE
     Indication: Cardiac neoplasm malignant
     Dosage: 1.4 MG/M2, 1X/DAY (ON DAY 1)
  10. VINCRISTINE [Suspect]
     Active Substance: VINCRISTINE
     Indication: Mantle cell lymphoma
  11. PREDNISOLONE [Suspect]
     Active Substance: PREDNISOLONE
     Indication: Mantle cell lymphoma
     Dosage: 500 MG (ON DAY 1 TO DAY 5)
  12. PREDNISOLONE [Suspect]
     Active Substance: PREDNISOLONE
     Indication: B-cell lymphoma

REACTIONS (5)
  - Respiratory failure [Fatal]
  - Tumour lysis syndrome [Fatal]
  - Shock [Fatal]
  - Pulmonary embolism [Fatal]
  - Pulmonary infarction [Fatal]
